FAERS Safety Report 17070524 (Version 2)
Quarter: 2019Q4

REPORT INFORMATION
  Report Type: Spontaneous
  Country: CA (occurrence: CA)
  Receive Date: 20191125
  Receipt Date: 20191211
  Transmission Date: 20200122
  Serious: Yes (Other)
  Sender: FDA-Public Use
  Company Number: CA-PFIZER INC-2019255470

PATIENT
  Age: 40 Year
  Sex: Female

DRUGS (2)
  1. XELJANZ [Suspect]
     Active Substance: TOFACITINIB CITRATE
     Dosage: 5 MG, 2X/DAY
     Route: 048
     Dates: start: 201906, end: 2019
  2. XELJANZ [Suspect]
     Active Substance: TOFACITINIB CITRATE
     Indication: PSORIATIC ARTHROPATHY
     Dosage: 5 MG, 2X/DAY
     Route: 048
     Dates: start: 20190411, end: 201906

REACTIONS (9)
  - White blood cell count increased [Unknown]
  - Fungal infection [Unknown]
  - Syncope [Unknown]
  - Rash [Recovered/Resolved]
  - Skin discolouration [Not Recovered/Not Resolved]
  - Ulcer [Unknown]
  - Gastrointestinal inflammation [Not Recovered/Not Resolved]
  - Gait disturbance [Unknown]
  - Psoriasis [Unknown]

NARRATIVE: CASE EVENT DATE: 2019
